FAERS Safety Report 5857369-0 (Version None)
Quarter: 2008Q3

REPORT INFORMATION
  Report Type: 
  Country: None (occurrence: None)
  Receive Date: 20080825
  Receipt Date: 20080825
  Transmission Date: 20090109
  Serious: No
  Sender: FDA-Public Use
  Company Number: None

PATIENT
  Age: 52 Year
  Sex: Male

DRUGS (10)
  1. METHOTREXATE [Suspect]
     Dates: start: 20011204, end: 20060914
  2. LASIX [Concomitant]
  3. ALDACTONE [Concomitant]
  4. PROPRANOLOL [Concomitant]
  5. OMEPRAZOLE [Concomitant]
  6. MULTI-VITAMIN [Concomitant]
  7. POTASSIUM CHLORIDE [Concomitant]
  8. LACTULOSE [Concomitant]
  9. DARVON [Concomitant]
  10. VICODIN [Concomitant]

REACTIONS (16)
  - ASCITES [None]
  - CHRONIC HEPATIC FAILURE [None]
  - CRYPTOGENIC CIRRHOSIS [None]
  - ENCEPHALOPATHY [None]
  - FLUID RETENTION [None]
  - HEPATIC ENCEPHALOPATHY [None]
  - HEPATIC FUNCTION ABNORMAL [None]
  - HEPATOTOXICITY [None]
  - HYPERSPLENISM [None]
  - LIVER DISORDER [None]
  - LIVER INJURY [None]
  - OESOPHAGEAL VARICES HAEMORRHAGE [None]
  - PORTAL HYPERTENSION [None]
  - RENAL FAILURE [None]
  - UPPER GASTROINTESTINAL HAEMORRHAGE [None]
  - VARICES OESOPHAGEAL [None]
